FAERS Safety Report 16337816 (Version 1)
Quarter: 2019Q2

REPORT INFORMATION
  Report Type: Spontaneous
  Country: US (occurrence: US)
  Receive Date: 20190521
  Receipt Date: 20190521
  Transmission Date: 20190711
  Serious: Yes (Death, Other)
  Sender: FDA-Public Use
  Company Number: US-BRISTOL-MYERS SQUIBB COMPANY-BMS-2019-047907

PATIENT
  Age: 60 Year
  Sex: Female

DRUGS (2)
  1. OPDIVO [Suspect]
     Active Substance: NIVOLUMAB
     Indication: BREAST CANCER
     Dosage: 203 MILLIGRAM, Q2WK
     Route: 042
  2. YERVOY [Suspect]
     Active Substance: IPILIMUMAB
     Indication: BREAST CANCER
     Dosage: 68 MILLIGRAM, Q2WK
     Route: 042

REACTIONS (2)
  - Death [Fatal]
  - Product use in unapproved indication [Unknown]

NARRATIVE: CASE EVENT DATE: 20190331
